FAERS Safety Report 16235313 (Version 2)
Quarter: 2019Q3

REPORT INFORMATION
  Report Type: Spontaneous
  Country: US (occurrence: US)
  Receive Date: 20190424
  Receipt Date: 20190719
  Transmission Date: 20191004
  Serious: Yes (Other)
  Sender: FDA-Public Use
  Company Number: US-ASTRAZENECA-2019SE10508

PATIENT
  Age: 56 Year
  Sex: Female
  Weight: 83.5 kg

DRUGS (45)
  1. LORAZEPAM. [Concomitant]
     Active Substance: LORAZEPAM
  2. DOXYCYCLINE. [Concomitant]
     Active Substance: DOXYCYCLINE
  3. VENLAFAXINE [Concomitant]
     Active Substance: VENLAFAXINE HYDROCHLORIDE
  4. AMITRIPTYLINE [Concomitant]
     Active Substance: AMITRIPTYLINE
  5. MELATONIN [Concomitant]
     Active Substance: MELATONIN
  6. CLONAZEPAM. [Concomitant]
     Active Substance: CLONAZEPAM
  7. CIPROFLOXACIN. [Concomitant]
     Active Substance: CIPROFLOXACIN
  8. AMITIZA [Concomitant]
     Active Substance: LUBIPROSTONE
  9. OXYBUTYNIN. [Concomitant]
     Active Substance: OXYBUTYNIN CHLORIDE
  10. LISINOPRIL. [Concomitant]
     Active Substance: LISINOPRIL
  11. CYCLOBENZAPRINE. [Concomitant]
     Active Substance: CYCLOBENZAPRINE
  12. RANITIDINE. [Concomitant]
     Active Substance: RANITIDINE
  13. VESICARE [Concomitant]
     Active Substance: SOLIFENACIN SUCCINATE
  14. ONDANSETRON [Concomitant]
     Active Substance: ONDANSETRON
  15. AMOXICILLIN. [Concomitant]
     Active Substance: AMOXICILLIN
  16. KETOROLAC [Concomitant]
     Active Substance: KETOROLAC TROMETHAMINE
  17. GABAPENTIN. [Concomitant]
     Active Substance: GABAPENTIN
  18. PRISTIQ EXTENDED-RELEASE [Concomitant]
     Active Substance: DESVENLAFAXINE SUCCINATE
  19. TIZANIDINE. [Concomitant]
     Active Substance: TIZANIDINE
  20. ZOLPIDEM [Concomitant]
     Active Substance: ZOLPIDEM TARTRATE
  21. ARIPIPRAZOLE. [Concomitant]
     Active Substance: ARIPIPRAZOLE
  22. LYRICA [Concomitant]
     Active Substance: PREGABALIN
  23. BENETHAMINE PENICILLIN [Concomitant]
     Active Substance: BENETHAMINE PENICILLIN
  24. BELSOMRA [Concomitant]
     Active Substance: SUVOREXANT
  25. PROPRANOLOL [Concomitant]
     Active Substance: PROPRANOLOL HYDROCHLORIDE
  26. PRILOSEC [Suspect]
     Active Substance: OMEPRAZOLE MAGNESIUM
     Indication: GASTROOESOPHAGEAL REFLUX DISEASE
     Route: 048
  27. METHYLPREDNISOLONE. [Concomitant]
     Active Substance: METHYLPREDNISOLONE
  28. SULINDAC. [Concomitant]
     Active Substance: SULINDAC
  29. TEMAZEPAM. [Concomitant]
     Active Substance: TEMAZEPAM
  30. CEPHALEXIN. [Concomitant]
     Active Substance: CEPHALEXIN
  31. AMITRIPTYLINE [Concomitant]
     Active Substance: AMITRIPTYLINE
  32. ZOLPIDEM [Concomitant]
     Active Substance: ZOLPIDEM TARTRATE
  33. DIAZEPAM. [Concomitant]
     Active Substance: DIAZEPAM
  34. CEFADROXIL. [Concomitant]
     Active Substance: CEFADROXIL
  35. AZITHROMYCIN ANHYDROUS. [Concomitant]
     Active Substance: AZITHROMYCIN ANHYDROUS
  36. PRILOSEC [Suspect]
     Active Substance: OMEPRAZOLE MAGNESIUM
     Indication: GASTROOESOPHAGEAL REFLUX DISEASE
     Dosage: 20 MG, UNK
     Route: 065
     Dates: start: 2012
  37. COLACE [Concomitant]
     Active Substance: DOCUSATE SODIUM
  38. SUMATRIPTAN. [Concomitant]
     Active Substance: SUMATRIPTAN
  39. HYDROXYCHLOROQUINE [Concomitant]
     Active Substance: HYDROXYCHLOROQUINE
  40. TIZANIDINE. [Concomitant]
     Active Substance: TIZANIDINE
  41. CARISOPRODOL. [Concomitant]
     Active Substance: CARISOPRODOL
  42. NITROFURANTOIN. [Concomitant]
     Active Substance: NITROFURANTOIN
  43. DULOXETINE. [Concomitant]
     Active Substance: DULOXETINE
  44. PROMETHAZINE [Concomitant]
     Active Substance: PROMETHAZINE HYDROCHLORIDE
  45. MEPERIDINE [Concomitant]
     Active Substance: MEPERIDINE

REACTIONS (3)
  - Rebound acid hypersecretion [Unknown]
  - Renal failure [Unknown]
  - Chronic kidney disease [Not Recovered/Not Resolved]

NARRATIVE: CASE EVENT DATE: 2013
